FAERS Safety Report 9318861 (Version 1)
Quarter: 2013Q2

REPORT INFORMATION
  Report Type: Spontaneous
  Country: NL (occurrence: NL)
  Receive Date: 20130530
  Receipt Date: 20130530
  Transmission Date: 20140414
  Serious: Yes (Life-Threatening, Hospitalization, Other)
  Sender: FDA-Public Use
  Company Number: NL-TEVA-407592ISR

PATIENT
  Age: 68 Year
  Sex: Male
  Weight: 110 kg

DRUGS (9)
  1. METFORMINE TABLET 1000MG [Suspect]
     Indication: TYPE 2 DIABETES MELLITUS
     Dosage: 3 TIMES A DAY ONE PIECE
     Route: 048
     Dates: start: 2011, end: 20130509
  2. ACENOCOUMAROL TABLET 1MG [Concomitant]
     Dosage: VA
     Route: 048
  3. SLOW K TABLET MGA 600MG [Concomitant]
     Dosage: 1DD1
     Route: 048
  4. LANOXIN TABLET 0,25MG [Concomitant]
     Dosage: 1DD1
     Route: 048
  5. FUROSEMIDE TABLET 40MG [Concomitant]
     Dosage: 2DD1
     Route: 048
  6. LOSARTAN TABLET FO 100MG [Concomitant]
     Dosage: 1DD1
     Route: 048
  7. COLCHICINE TABLET 0,5MG [Concomitant]
     Dosage: 3DD1
     Route: 048
  8. SIMVASTATINE TABLET 40MG [Concomitant]
     Dosage: 1DD1
     Route: 048
  9. SPIRONOLACTON TABLET 25MG [Concomitant]
     Dosage: 1DD1
     Route: 048

REACTIONS (3)
  - Lactic acidosis [Recovering/Resolving]
  - Renal failure [Recovering/Resolving]
  - Multi-organ failure [Recovering/Resolving]
